FAERS Safety Report 4620847-6 (Version None)
Quarter: 2005Q1

REPORT INFORMATION
  Report Type: 
  Country: None (occurrence: None)
  Receive Date: 20050325
  Receipt Date: 20050311
  Transmission Date: 20050727
  Serious: Yes (Other)
  Sender: FDA-Public Use
  Company Number: 30583

PATIENT
  Age: 3 Year
  Sex: Male

DRUGS (1)
  1. ATROPINE [Suspect]
     Indication: AMBLYOPIA

REACTIONS (1)
  - VISUAL ACUITY REDUCED [None]
